FAERS Safety Report 8573948 (Version 10)
Quarter: 2012Q4

REPORT INFORMATION
  Report Type: Report from Study
  Country: JP (occurrence: JP)
  Receive Date: 20120522
  Receipt Date: 20121015
  Transmission Date: 20130627
  Serious: Yes (Hospitalization)
  Sender: FDA-Public Use
  Company Number: JP-JNJFOC-20120512665

PATIENT
  Age: 86 Year
  Sex: Female
  Weight: 46 kg

DRUGS (27)
  1. REMINYL [Suspect]
     Indication: DEMENTIA ALZHEIMER^S TYPE
     Route: 048
     Dates: start: 20120507, end: 20120521
  2. REMINYL [Suspect]
     Indication: DEMENTIA ALZHEIMER^S TYPE
     Route: 048
     Dates: start: 20120327, end: 20120423
  3. REMINYL [Suspect]
     Indication: DEMENTIA ALZHEIMER^S TYPE
     Route: 048
     Dates: start: 20120502, end: 20120506
  4. REMINYL [Suspect]
     Indication: DEMENTIA ALZHEIMER^S TYPE
     Route: 048
     Dates: start: 20120423, end: 20120502
  5. RIKKUNSHI-TO [Concomitant]
     Indication: DECREASED APPETITE
     Route: 048
     Dates: start: 20120514, end: 20120614
  6. THYRADIN S [Concomitant]
     Indication: HYPOTHYROIDISM
     Route: 048
  7. FERROMIA [Concomitant]
     Indication: IRON DEFICIENCY ANAEMIA
     Route: 048
  8. CALBLOCK [Concomitant]
     Indication: HYPERTENSION
     Route: 048
  9. NATRIX [Concomitant]
     Indication: HYPERTENSION
     Route: 048
     Dates: end: 20120511
  10. ETHYL ICOSAPENTATE [Concomitant]
     Indication: HYPERLIPIDAEMIA
     Route: 048
  11. MIYA-BM [Concomitant]
     Indication: CONSTIPATION
     Route: 048
  12. COLONEL [Concomitant]
     Indication: CONSTIPATION
     Route: 048
     Dates: start: 20120414
  13. COLONEL [Concomitant]
     Indication: CONSTIPATION
     Route: 048
     Dates: end: 20120413
  14. UNKNOWN MEDICATION [Concomitant]
     Indication: HYPERLIPIDAEMIA
     Route: 048
     Dates: start: 20120327, end: 20120327
  15. HOKUNALIN TAPE [Concomitant]
     Indication: ASTHMA
     Route: 062
     Dates: start: 20120427, end: 20120427
  16. UNKNOWN MEDICATION [Concomitant]
     Indication: PAIN IN EXTREMITY
     Route: 048
     Dates: start: 20120430, end: 20120501
  17. METHYCOBAL [Concomitant]
     Indication: NEUROPATHY PERIPHERAL
     Route: 048
  18. MUCOSTA [Concomitant]
     Indication: PROPHYLAXIS
     Route: 048
  19. FOLIAMIN [Concomitant]
     Route: 048
     Dates: start: 20120612
  20. ACTIT [Concomitant]
     Indication: DECREASED APPETITE
     Route: 041
     Dates: start: 20120528, end: 20120603
  21. ACTIT [Concomitant]
     Indication: DECREASED APPETITE
     Route: 041
     Dates: start: 20120512, end: 20120518
  22. BFLUID [Concomitant]
     Indication: DECREASED APPETITE
     Route: 041
     Dates: start: 20120604, end: 20120615
  23. PREDONINE [Concomitant]
     Indication: PROPHYLAXIS
     Route: 048
     Dates: start: 20120613, end: 20120619
  24. PREDONINE [Concomitant]
     Indication: PROPHYLAXIS
     Route: 048
     Dates: start: 20120706
  25. PREDONINE [Concomitant]
     Indication: PROPHYLAXIS
     Route: 048
     Dates: start: 20120620, end: 20120705
  26. HOCHU-EKKI-TO [Concomitant]
     Indication: DECREASED APPETITE
     Route: 048
     Dates: start: 20120615, end: 20120807
  27. BANAN [Concomitant]
     Indication: CYSTITIS
     Route: 048
     Dates: start: 20120502, end: 20120509

REACTIONS (2)
  - Decreased appetite [Recovered/Resolved]
  - Inflammation [Recovered/Resolved]
